FAERS Safety Report 4596204-8 (Version None)
Quarter: 2005Q1

REPORT INFORMATION
  Report Type: 
  Country: None (occurrence: None)
  Receive Date: 20050225
  Receipt Date: 20050215
  Transmission Date: 20050727
  Serious: Yes (Hospitalization)
  Sender: FDA-Public Use
  Company Number: FABR-11026

PATIENT
  Age: 22 Year
  Sex: Female
  Weight: 46 kg

DRUGS (1)
  1. FABRAZYME [Suspect]
     Indication: FABRY'S DISEASE
     Dosage: 70 MG Q2WKS IV
     Route: 042
     Dates: start: 20031001

REACTIONS (2)
  - DIARRHOEA [None]
  - RENAL TRANSPLANT [None]
